FAERS Safety Report 9412611 (Version 1)
Quarter: 2013Q2

REPORT INFORMATION
  Report Type: Spontaneous
  Country: FR (occurrence: FR)
  Receive Date: 20130624
  Receipt Date: 20130624
  Transmission Date: 20140414
  Serious: Yes (Other)
  Sender: FDA-Public Use
  Company Number: FR-1198008

PATIENT
  Sex: Male

DRUGS (2)
  1. TRAVATAN 0.004 % OPHTHALMIC SOLUTION (TRAVATAN POLYQUAD 0.004%) [Suspect]
     Route: 047
     Dates: start: 201206
  2. AZOPT 1% OPHTHALMIC SUSPENSION (AZOPT 1%) [Suspect]
     Route: 047
     Dates: start: 2005

REACTIONS (1)
  - Hallucination, visual [None]
